FAERS Safety Report 17355047 (Version 2)
Quarter: 2020Q2

REPORT INFORMATION
  Report Type: Spontaneous
  Country: US (occurrence: US)
  Receive Date: 20200131
  Receipt Date: 20200402
  Transmission Date: 20200713
  Serious: No
  Sender: FDA-Public Use
  Company Number: US-PFIZER INC-2020042661

PATIENT
  Age: 76 Year
  Sex: Female
  Weight: 69.85 kg

DRUGS (2)
  1. ALPRAZOLAM. [Suspect]
     Active Substance: ALPRAZOLAM
     Dosage: 3 MG, 1X/DAY (FREQUENTLY SO SHE WOULD SAY EVERY NIGHT)
     Route: 048
  2. ALPRAZOLAM. [Suspect]
     Active Substance: ALPRAZOLAM
     Indication: SLEEP DISORDER
     Dosage: 1 MG, UNK

REACTIONS (1)
  - Therapeutic product effect incomplete [Unknown]
